FAERS Safety Report 24095275 (Version 1)
Quarter: 2024Q3

REPORT INFORMATION
  Report Type: Report from Study
  Country: US (occurrence: None)
  Receive Date: 20240716
  Receipt Date: 20240716
  Transmission Date: 20241016
  Serious: Yes (Other)
  Sender: ASTRAZENECA
  Company Number: 2019SF81717

PATIENT
  Sex: Male

DRUGS (8)
  1. TAGRISSO [Suspect]
     Active Substance: OSIMERTINIB
     Indication: Bone neoplasm
     Route: 048
  2. KLOR-CON [Concomitant]
     Active Substance: POTASSIUM CHLORIDE
  3. PROCHLORPERAZINE [Concomitant]
     Active Substance: PROCHLORPERAZINE
  4. OXYCODONE [Concomitant]
     Active Substance: OXYCODONE
  5. DEXAMETHASONE [Concomitant]
     Active Substance: DEXAMETHASONE
  6. XANAX [Concomitant]
     Active Substance: ALPRAZOLAM
  7. ALBUTEROL [Concomitant]
     Active Substance: ALBUTEROL
  8. ADVAIR HFA [Concomitant]
     Active Substance: FLUTICASONE PROPIONATE\SALMETEROL XINAFOATE

REACTIONS (1)
  - Cerebrovascular accident [Unknown]
